FAERS Safety Report 10770564 (Version 1)
Quarter: 2015Q1

REPORT INFORMATION
  Report Type: Report from Study
  Country: DK (occurrence: DK)
  Receive Date: 20150206
  Receipt Date: 20150206
  Transmission Date: 20150721
  Serious: Yes (Death)
  Sender: FDA-Public Use
  Company Number: DK-SA-2015SA014599

PATIENT

DRUGS (3)
  1. OXALIPLATIN. [Suspect]
     Active Substance: OXALIPLATIN
     Indication: OESOPHAGEAL CARCINOMA
     Dosage: ON DAY 1
     Route: 042
  2. TEGAFUR URACIL [Suspect]
     Active Substance: TEGAFUR
     Indication: OESOPHAGEAL CARCINOMA
     Dosage: DAY 1 TO 14.
     Route: 048
  3. FOLIC ACID. [Concomitant]
     Active Substance: FOLIC ACID
     Dosage: DAY 1-14

REACTIONS (1)
  - Diarrhoea [Fatal]
